FAERS Safety Report 4951172-1 (Version None)
Quarter: 2006Q1

REPORT INFORMATION
  Report Type: 
  Country: None (occurrence: None)
  Receive Date: 20060315
  Receipt Date: 20060308
  Transmission Date: 20060701
  Serious: No
  Sender: FDA-Public Use
  Company Number: 2006-139515-NL

PATIENT
  Age: 41 Year
  Sex: Female

DRUGS (5)
  1. MIRTAZAPINE [Suspect]
     Dosage: DF
     Dates: start: 20020215, end: 20020303
  2. CLORAZEPATE DIPOTASSIUM [Concomitant]
  3. PROPIVERENE HYDROCHLORIDE [Concomitant]
  4. BENPERIDOL [Suspect]
     Dosage: DF
  5. MELPERONE HYDROCHLORIDE [Suspect]
     Dosage: 50 MG

REACTIONS (3)
  - AKATHISIA [None]
  - DRUG INTERACTION [None]
  - SUICIDE ATTEMPT [None]
